FAERS Safety Report 9457556 (Version 3)
Quarter: 2013Q3

REPORT INFORMATION
  Report Type: Spontaneous
  Country: FR (occurrence: FR)
  Receive Date: 20130814
  Receipt Date: 20130927
  Transmission Date: 20140515
  Serious: Yes (Other)
  Sender: FDA-Public Use
  Company Number: FR-JNJFOC-20130803340

PATIENT
  Age: 19 Year
  Sex: Male

DRUGS (17)
  1. REOPRO [Suspect]
     Indication: ACUTE CORONARY SYNDROME
     Route: 042
     Dates: start: 20130510
  2. REOPRO [Suspect]
     Indication: ACUTE CORONARY SYNDROME
     Route: 042
     Dates: start: 20130506
  3. REOPRO [Suspect]
     Indication: ELECTROCARDIOGRAM ST SEGMENT ELEVATION
     Route: 042
     Dates: start: 20130510
  4. REOPRO [Suspect]
     Indication: ELECTROCARDIOGRAM ST SEGMENT ELEVATION
     Route: 042
     Dates: start: 20130506
  5. ALPRAZOLAM [Concomitant]
     Route: 065
  6. TAZOCILLINE [Concomitant]
     Route: 065
  7. CETRIZINE [Concomitant]
     Route: 065
  8. PERINDOPRIL [Concomitant]
     Route: 065
  9. KARDEGIC [Concomitant]
     Route: 065
  10. PLAVIX [Concomitant]
     Route: 065
  11. TAHOR [Concomitant]
     Route: 065
  12. SPECIAFOLDINE [Concomitant]
     Route: 065
  13. PROCORALAN [Concomitant]
     Route: 065
  14. EUPANTOL [Concomitant]
     Route: 065
  15. TARDYFERON [Concomitant]
     Route: 065
  16. OMACOR [Concomitant]
     Route: 065
  17. GAVISCON NOS [Concomitant]
     Route: 065

REACTIONS (1)
  - Thrombocytopenia [Recovered/Resolved]
